FAERS Safety Report 7959992-6 (Version None)
Quarter: 2011Q4

REPORT INFORMATION
  Report Type: 
  Country: None (occurrence: None)
  Receive Date: 20111206
  Receipt Date: 20111122
  Transmission Date: 20120403
  Serious: Yes (Other)
  Sender: FDA-Public Use
  Company Number: PHHY2011JP105429

PATIENT
  Age: 67 Year
  Sex: Male

DRUGS (4)
  1. ARICEPT [Concomitant]
     Indication: DEMENTIA ALZHEIMER'S TYPE
     Dosage: 3 MG, PER DAY
     Dates: start: 20111001, end: 20111025
  2. NEORAL [Suspect]
     Indication: PSORIASIS
     Route: 048
     Dates: start: 20010101
  3. CANDESARTAN CILEXETIL [Concomitant]
     Indication: HYPERTENSION
     Route: 048
  4. URIEF [Concomitant]
     Indication: BENIGN PROSTATIC HYPERPLASIA
     Route: 048

REACTIONS (4)
  - DEMENTIA ALZHEIMER'S TYPE [None]
  - CONSTIPATION [None]
  - COUGH [None]
  - MEMORY IMPAIRMENT [None]
